FAERS Safety Report 5042458-3 (Version None)
Quarter: 2006Q2

REPORT INFORMATION
  Report Type: 
  Country: None (occurrence: None)
  Receive Date: 20060601
  Receipt Date: 20060325
  Transmission Date: 20061013
  Serious: No
  Sender: FDA-Public Use
  Company Number: 2006PV011019

PATIENT
  Age: 46 Year
  Sex: Male
  Weight: 92.9874 kg

DRUGS (4)
  1. BYETTA [Suspect]
     Indication: DIABETES MELLITUS NON-INSULIN-DEPENDENT
     Dosage: 5 MCG;BID;SC
     Route: 058
     Dates: start: 20060324
  2. METFORMIN [Concomitant]
  3. AVANDIA [Concomitant]
  4. GLYBURIDE [Concomitant]

REACTIONS (6)
  - DRUG INEFFECTIVE [None]
  - FLATULENCE [None]
  - HAEMATEMESIS [None]
  - HEADACHE [None]
  - NAUSEA [None]
  - VOMITING [None]
